FAERS Safety Report 11099798 (Version 1)
Quarter: 2015Q2

REPORT INFORMATION
  Report Type: Spontaneous
  Country: JP (occurrence: JP)
  Receive Date: 20150508
  Receipt Date: 20150508
  Transmission Date: 20150821
  Serious: Yes (Other)
  Sender: FDA-Public Use
  Company Number: JP-PFIZER INC-2015151465

PATIENT
  Sex: Male

DRUGS (1)
  1. HALCION [Suspect]
     Active Substance: TRIAZOLAM
     Dosage: UNK
     Route: 048

REACTIONS (5)
  - Cardiac disorder [Unknown]
  - Hepatic function abnormal [Unknown]
  - Diabetes mellitus [Unknown]
  - Hepatic steatosis [Unknown]
  - Expired product administered [Unknown]
